FAERS Safety Report 5206907-X (Version None)
Quarter: 2007Q1

REPORT INFORMATION
  Report Type: 
  Country: None (occurrence: None)
  Receive Date: 20070105
  Receipt Date: 20070105
  Transmission Date: 20070707
  Serious: Yes (Hospitalization)
  Sender: FDA-Public Use
  Company Number: None

PATIENT
  Age: 83 Year
  Sex: Male
  Weight: 82 kg

DRUGS (5)
  1. WARFARIN SODIUM [Suspect]
     Indication: ATRIAL FIBRILLATION
     Dosage: 5MG PO QD
     Route: 048
  2. ASPIRIN [Concomitant]
  3. ENALAPRIL MALEATE [Concomitant]
  4. DONEPEZIL HCL [Concomitant]
  5. AMLODIPINE [Concomitant]

REACTIONS (9)
  - BRAIN SCAN ABNORMAL [None]
  - CONTUSION [None]
  - FALL [None]
  - INTERNATIONAL NORMALISED RATIO DECREASED [None]
  - MENINGITIS [None]
  - NERVOUS SYSTEM DISORDER [None]
  - SKULL FRACTURED BASE [None]
  - SUBARACHNOID HAEMORRHAGE [None]
  - SUBDURAL HAEMATOMA [None]
